FAERS Safety Report 9253948 (Version 1)
Quarter: 2013Q2

REPORT INFORMATION
  Report Type: Spontaneous
  Country: IT (occurrence: None)
  Receive Date: 20130419
  Receipt Date: 20130419
  Transmission Date: 20140414
  Serious: Yes (Hospitalization)
  Sender: FDA-Public Use
  Company Number: FK201301207

PATIENT
  Age: 73 Year
  Sex: Female
  Weight: 65 kg

DRUGS (4)
  1. CARBOPLATIN [Suspect]
     Indication: OVARIAN CANCER STAGE IV
     Dosage: 5, DOSAGE UNIT, INTRAVENOUS (NOT OTHERWISE SPECIFIED)
     Route: 042
     Dates: start: 20130227, end: 20130227
  2. GEMCITABINE (MANUFACTURER UNKNOWN) (GEMCITABINE) (GEMCITABINE) [Suspect]
     Indication: OVARIAN CANCER STAGE IV
     Dosage: 1000, MG/MQ BODY SURFACE, INTRAVENOUS (NOT OTHERWISE SPECIFIED)
     Route: 042
     Dates: start: 20130227, end: 20130227
  3. MODURETIC (MODURETIC) [Concomitant]
  4. TENORMIN (ATENOLOL) [Concomitant]

REACTIONS (1)
  - Pancytopenia [None]
